APPROVED DRUG PRODUCT: EPTIFIBATIDE
Active Ingredient: EPTIFIBATIDE
Strength: 75MG/100ML
Dosage Form/Route: INJECTABLE;INJECTION
Application: A206127 | Product #002 | TE Code: AP
Applicant: EUGIA PHARMA SPECIALITIES LTD
Approved: Dec 8, 2015 | RLD: No | RS: No | Type: RX